FAERS Safety Report 12893673 (Version 1)
Quarter: 2016Q4

REPORT INFORMATION
  Report Type: Report from Study
  Country: US (occurrence: US)
  Receive Date: 20161028
  Receipt Date: 20161028
  Transmission Date: 20170207
  Serious: No
  Sender: FDA-Public Use
  Company Number: US-AMGEN-USASL2016149899

PATIENT
  Age: 36 Year
  Sex: Female

DRUGS (1)
  1. ENBREL [Suspect]
     Active Substance: ETANERCEPT
     Indication: RHEUMATOID ARTHRITIS
     Dosage: 0.98 ML OF A 50 MG/ML SOLUTION OF ETANERCEPT, QWK
     Route: 065
     Dates: start: 20161006

REACTIONS (3)
  - Injection site pain [Unknown]
  - Incorrect dose administered [Unknown]
  - Drug dose omission [Unknown]

NARRATIVE: CASE EVENT DATE: 201610
